FAERS Safety Report 7417640-8 (Version None)
Quarter: 2011Q2

REPORT INFORMATION
  Report Type: 
  Country: None (occurrence: None)
  Receive Date: 20110415
  Receipt Date: 20110405
  Transmission Date: 20111010
  Serious: Yes (Hospitalization)
  Sender: FDA-Public Use
  Company Number: PHHY2011NL28407

PATIENT
  Sex: Female
  Weight: 56 kg

DRUGS (1)
  1. ACLASTA [Suspect]
     Indication: OSTEOPOROSIS
     Dosage: 0.05MG/ML
     Route: 042
     Dates: start: 20110304

REACTIONS (3)
  - BONE PAIN [None]
  - MIGRAINE [None]
  - MUSCULOSKELETAL PAIN [None]
